FAERS Safety Report 26125303 (Version 1)
Quarter: 2025Q4

REPORT INFORMATION
  Report Type: Other
  Country: BR (occurrence: BR)
  Receive Date: 20251205
  Receipt Date: 20251205
  Transmission Date: 20260117
  Serious: Yes (Death, Hospitalization, Other)
  Sender: ANI
  Company Number: BR-ANIPHARMA-035476

PATIENT
  Age: 59 Year
  Sex: Male

DRUGS (4)
  1. LEUCOVORIN [Suspect]
     Active Substance: LEUCOVORIN\LEUCOVORIN CALCIUM
     Indication: Oesophageal adenocarcinoma
     Dosage: FIRST-LINE THERAPY, SIX CYCLES
  2. FLUOROURACIL [Concomitant]
     Active Substance: FLUOROURACIL
     Indication: Oesophageal adenocarcinoma
     Dosage: FIRST-LINE THERAPY, SIX CYCLES
  3. OXALIPLATIN [Concomitant]
     Active Substance: OXALIPLATIN
     Indication: Oesophageal adenocarcinoma
     Dosage: FIRST-LINE THERAPY, SIX CYCLES
  4. NIVOLUMAB [Concomitant]
     Active Substance: NIVOLUMAB
     Indication: Oesophageal adenocarcinoma
     Dosage: FIRST-LINE THERAPY, SIX CYCLES

REACTIONS (3)
  - Pulmonary embolism [Fatal]
  - Seizure [Fatal]
  - Disease progression [Fatal]
